FAERS Safety Report 4982401-6 (Version None)
Quarter: 2006Q2

REPORT INFORMATION
  Report Type: 
  Country: None (occurrence: None)
  Receive Date: 20060424
  Receipt Date: 20060424
  Transmission Date: 20061013
  Serious: No
  Sender: FDA-Public Use
  Company Number: None

PATIENT
  Sex: Female

DRUGS (14)
  1. LISINOPRIL [Suspect]
     Indication: CARDIAC FAILURE CONGESTIVE
     Dosage: 20 MG 1 PO QD
     Route: 048
  2. LISINOPRIL [Suspect]
     Indication: HYPERTENSION
     Dosage: 20 MG 1 PO QD
     Route: 048
  3. PRINIVIL [Concomitant]
  4. HYDROCHLOROTHIAZIDE [Concomitant]
  5. COUMADIN [Concomitant]
  6. B-50 COMPLEX [Concomitant]
  7. LANOXIN [Concomitant]
  8. GEN TEAL EYEDROPS [Concomitant]
  9. MAGNESIUM CHLORIDE [Concomitant]
  10. GLUCOSAMINE [Concomitant]
  11. ALLOPURINOL [Concomitant]
  12. B-6 [Concomitant]
  13. FOLIC ACID [Concomitant]
  14. ATENOLOL [Concomitant]

REACTIONS (9)
  - ABDOMINAL PAIN LOWER [None]
  - ABDOMINAL PAIN UPPER [None]
  - BLOOD PRESSURE INCREASED [None]
  - BURNING SENSATION [None]
  - CHEST PAIN [None]
  - CONDITION AGGRAVATED [None]
  - DIZZINESS [None]
  - HEADACHE [None]
  - NAUSEA [None]
